FAERS Safety Report 11583399 (Version 2)
Quarter: 2015Q4

REPORT INFORMATION
  Report Type: Report from Study
  Country: IT (occurrence: IT)
  Receive Date: 20151001
  Receipt Date: 20151111
  Transmission Date: 20160304
  Serious: Yes (Other)
  Sender: FDA-Public Use
  Company Number: IT-ROCHE-1640550

PATIENT

DRUGS (1)
  1. RITUXIMAB [Suspect]
     Active Substance: RITUXIMAB
     Indication: NEUROMYELITIS OPTICA
     Route: 042

REACTIONS (2)
  - Infusion related reaction [Unknown]
  - Respiratory disorder [Unknown]
